FAERS Safety Report 4924631-5 (Version None)
Quarter: 2006Q1

REPORT INFORMATION
  Report Type: 
  Country: None (occurrence: None)
  Receive Date: 20060222
  Receipt Date: 20060206
  Transmission Date: 20060701
  Serious: Yes (Death)
  Sender: FDA-Public Use
  Company Number: 2006-DE-00607GD

PATIENT
  Age: 44 Year
  Sex: Male

DRUGS (5)
  1. ZIDOVUDINE [Suspect]
     Indication: HIV INFECTION
  2. LAMIVUDINE [Suspect]
     Indication: HIV INFECTION
  3. NELFINAVIR (NELFINAVIR) [Suspect]
     Indication: HIV INFECTION
  4. INTERFERON ALPHA-2B(INTERFERON ALFA-2B) [Suspect]
     Indication: HEPATITIS C VIRUS
     Dosage: 3 MU THRICE WEEKLY ,SC
     Route: 058
  5. RIBAVIRIN [Suspect]
     Indication: HEPATITIS C VIRUS
     Dosage: 800 MG

REACTIONS (1)
  - HEPATIC FAILURE [None]
